FAERS Safety Report 9870216 (Version 1)
Quarter: 2014Q1

REPORT INFORMATION
  Report Type: Spontaneous
  Country: US (occurrence: None)
  Receive Date: 20140131
  Receipt Date: 20140131
  Transmission Date: 20141002
  Serious: Yes (Hospitalization)
  Sender: FDA-Public Use
  Company Number: UTC-043701

PATIENT
  Age: 63 Year
  Sex: Female
  Weight: 105.9 kg

DRUGS (2)
  1. REMODULIN [Suspect]
     Indication: COR PULMONALE CHRONIC
     Dosage: (0.0605 UG/KG, 1 IN 1 MIN)
     Route: 058
  2. REVATIO [Concomitant]

REACTIONS (1)
  - Cardiac failure acute [None]
